FAERS Safety Report 10477374 (Version 1)
Quarter: 2014Q3

REPORT INFORMATION
  Report Type: Spontaneous
  Country: US (occurrence: None)
  Receive Date: 20140925
  Receipt Date: 20140925
  Transmission Date: 20150326
  Serious: Yes (Hospitalization)
  Sender: FDA-Public Use
  Company Number: None

PATIENT
  Age: 71 Year
  Sex: Female
  Weight: 83.01 kg

DRUGS (21)
  1. SERTRALINE [Concomitant]
     Active Substance: SERTRALINE HYDROCHLORIDE
  2. VALPORIC ACID [Concomitant]
     Active Substance: VALPROIC ACID
  3. ASA [Concomitant]
     Active Substance: ASPIRIN
  4. LORAZEPAM. [Concomitant]
     Active Substance: LORAZEPAM
  5. MIRALAX [Concomitant]
     Active Substance: POLYETHYLENE GLYCOL 3350
  6. LEUCOVORIN [Concomitant]
     Active Substance: LEUCOVORIN
  7. VESICARE [Concomitant]
     Active Substance: SOLIFENACIN SUCCINATE
  8. CRESTOR [Concomitant]
     Active Substance: ROSUVASTATIN CALCIUM
  9. OXYCODONE [Concomitant]
     Active Substance: OXYCODONE
  10. VITAMIN B12 [Concomitant]
     Active Substance: CYANOCOBALAMIN
  11. COMPLEX B [Concomitant]
     Active Substance: CALCIUM PANTOTHENATE\CYANOCOBALAMIN\NIACINAMIDE\PYRIDOXINE HYDROCHLORIDE\RIBOFLAVIN\THIAMINE MONONITRATE
  12. CELEBREX [Concomitant]
     Active Substance: CELECOXIB
  13. PLAVIX [Concomitant]
     Active Substance: CLOPIDOGREL BISULFATE
  14. 5-FU [Suspect]
     Active Substance: FLUOROURACIL
     Indication: PANCREATIC CARCINOMA
     Dates: start: 20140515
  15. OXALIPLATIN. [Concomitant]
     Active Substance: OXALIPLATIN
  16. VITAMIN D [Concomitant]
     Active Substance: CHOLECALCIFEROL
  17. ZOFRAN [Concomitant]
     Active Substance: ONDANSETRON HYDROCHLORIDE
  18. ABRAXANE [Suspect]
     Active Substance: PACLITAXEL
     Indication: PANCREATIC CARCINOMA
     Dates: start: 20140517
  19. DEXAMETHASONE. [Concomitant]
     Active Substance: DEXAMETHASONE
  20. COMPAZINE [Concomitant]
     Active Substance: PROCHLORPERAZINE MALEATE
  21. METOPROLOL [Concomitant]
     Active Substance: METOPROLOL

REACTIONS (5)
  - Dysarthria [None]
  - Asthenia [None]
  - Neuropathy peripheral [None]
  - Transient ischaemic attack [None]
  - Aphasia [None]

NARRATIVE: CASE EVENT DATE: 20140817
